FAERS Safety Report 11644686 (Version 1)
Quarter: 2015Q4

REPORT INFORMATION
  Report Type: Spontaneous
  Country: US (occurrence: None)
  Receive Date: 20151019
  Receipt Date: 20151019
  Transmission Date: 20160304
  Serious: No
  Sender: FDA-Public Use
  Company Number: None

PATIENT
  Age: 32 Year
  Sex: Female
  Weight: 52.16 kg

DRUGS (4)
  1. EFFEXOR [Concomitant]
     Active Substance: VENLAFAXINE HYDROCHLORIDE
  2. VITAMIN D [Concomitant]
     Active Substance: CHOLECALCIFEROL
  3. IBANDRONATE [Suspect]
     Active Substance: IBANDRONATE SODIUM
     Indication: OSTEOPOROSIS
     Dosage: 1 PILL ONCE MONTHLY
     Route: 048
     Dates: start: 20151015, end: 20151016
  4. EXEMESTANE. [Concomitant]
     Active Substance: EXEMESTANE

REACTIONS (3)
  - Nausea [None]
  - Influenza like illness [None]
  - Abdominal discomfort [None]

NARRATIVE: CASE EVENT DATE: 20151015
